FAERS Safety Report 8283514-6 (Version None)
Quarter: 2012Q2

REPORT INFORMATION
  Report Type: 
  Country: None (occurrence: None)
  Receive Date: 20120413
  Receipt Date: 20120404
  Transmission Date: 20120825
  Serious: Yes (Other)
  Sender: FDA-Public Use
  Company Number: US-ASTRAZENECA-2011SE62276

PATIENT
  Age: 56 Year
  Sex: Male

DRUGS (4)
  1. SEROQUEL [Suspect]
     Indication: SCHIZOPHRENIA
     Route: 048
  2. HALDOL [Concomitant]
  3. NEXIUM [Concomitant]
  4. SEROQUEL [Suspect]
     Route: 048

REACTIONS (8)
  - FOOT FRACTURE [None]
  - PSYCHOTIC DISORDER [None]
  - GASTROOESOPHAGEAL REFLUX DISEASE [None]
  - HALLUCINATION, AUDITORY [None]
  - HALLUCINATION [None]
  - CONVULSION [None]
  - ADVERSE EVENT [None]
  - INTENTIONAL DRUG MISUSE [None]
